FAERS Safety Report 26126227 (Version 3)
Quarter: 2025Q4

REPORT INFORMATION
  Report Type: Report from Study
  Country: US (occurrence: US)
  Receive Date: 20251205
  Receipt Date: 20251209
  Transmission Date: 20260117
  Serious: Yes (Hospitalization)
  Sender: ABBVIE
  Company Number: US-ABBVIE-6572693

PATIENT
  Age: 67 Year
  Sex: Male

DRUGS (8)
  1. VENETOCLAX [Suspect]
     Active Substance: VENETOCLAX
     Indication: Natural killer-cell lymphoblastic lymphoma
     Dosage: TAKE WITH FOOD; 1 BOTTLE CONTAINING 28 X 100MG TABLETS
     Route: 048
     Dates: start: 20251128
  2. ABIRATERONE [Concomitant]
     Active Substance: ABIRATERONE
     Indication: Product used for unknown indication
     Dosage: WITH LOW FAT MEAL
     Route: 048
  3. ACETAMINOPHEN [Concomitant]
     Active Substance: ACETAMINOPHEN
     Indication: Pain
     Dosage: TAKE 2 TABLETS EVERY 4 HOURS AS NEEDED?ACETAMINOPHEN MAX DOSE 4 GRAMS PER 24 HOURS.
     Route: 048
  4. LEVETIRACETAM [Concomitant]
     Active Substance: LEVETIRACETAM
     Indication: Product used for unknown indication
     Dosage: 180 TAB
     Route: 048
  5. NALOXONE [Concomitant]
     Active Substance: NALOXONE
     Indication: Product used for unknown indication
     Dosage: USE 1 SPRAY IN ONE NOSTRIL ONCE AS NEEDED FOR OVERDOSE.
  6. PREDNISONE [Concomitant]
     Active Substance: PREDNISONE
     Indication: Product used for unknown indication
     Route: 048
  7. RELUGOLIX [Concomitant]
     Active Substance: RELUGOLIX
     Indication: Product used for unknown indication
     Dosage: TAKE 3 TABLETS ON DAY 1
     Route: 048
  8. RELUGOLIX [Concomitant]
     Active Substance: RELUGOLIX
     Indication: Product used for unknown indication
     Route: 048

REACTIONS (2)
  - Natural killer-cell lymphoblastic lymphoma [Not Recovered/Not Resolved]
  - Off label use [Not Recovered/Not Resolved]

NARRATIVE: CASE EVENT DATE: 20251128
